FAERS Safety Report 6853225-X (Version None)
Quarter: 2010Q3

REPORT INFORMATION
  Report Type: 
  Country: None (occurrence: None)
  Receive Date: 20100717
  Receipt Date: 20071204
  Transmission Date: 20110219
  Serious: No
  Sender: FDA-Public Use
  Company Number: US-PFIZER INC-2007102236

PATIENT
  Age: 50 Year
  Sex: Male
  Weight: 102.1 kg

DRUGS (3)
  1. CHANTIX [Suspect]
     Indication: SMOKING CESSATION THERAPY
     Route: 048
     Dates: start: 20071129
  2. SOMA [Concomitant]
     Route: 048
     Dates: start: 20000101
  3. OXYCONTIN [Concomitant]
     Route: 048
     Dates: start: 20020101

REACTIONS (1)
  - MALAISE [None]
